FAERS Safety Report 19264606 (Version 1)
Quarter: 2021Q2

REPORT INFORMATION
  Report Type: Spontaneous
  Country: US (occurrence: US)
  Receive Date: 20210516
  Receipt Date: 20210516
  Transmission Date: 20210717
  Serious: Yes (Other)
  Sender: FDA-Public Use
  Company Number: None

PATIENT
  Age: 56 Year
  Sex: Male
  Weight: 74.84 kg

DRUGS (32)
  1. HUMIRA [Concomitant]
     Active Substance: ADALIMUMAB
  2. VITAMIN B COMPLEX [Concomitant]
     Active Substance: CYANOCOBALAMIN\DEXPANTHENOL\NIACINAMIDE\PYRIDOXINE HYDROCHLORIDE\RIBOFLAVIN 5^-PHOSPHATE SODIUM\THIAMINE HYDROCHLORIDE\VITAMIN B COMPLEX
  3. SAW PALMETTO EXTRACT [Concomitant]
  4. TRIAMTERENE. [Concomitant]
     Active Substance: TRIAMTERENE
  5. NIACIN. [Concomitant]
     Active Substance: NIACIN
  6. MAGNESIUM CITRATE. [Concomitant]
     Active Substance: MAGNESIUM CITRATE
  7. MAGNESIUM [Concomitant]
     Active Substance: MAGNESIUM
  8. PROSTATE PLUS [Concomitant]
  9. VITAMIN C [Concomitant]
     Active Substance: ASCORBIC ACID
  10. THIAMIN [Concomitant]
     Active Substance: THIAMINE
  11. RIBOFLAVIN [Concomitant]
     Active Substance: RIBOFLAVIN
  12. VITAMIN D [Concomitant]
     Active Substance: VITAMIN D NOS
  13. BIOTIN [Concomitant]
     Active Substance: BIOTIN
  14. LINOLEIC ACID [Concomitant]
     Active Substance: LINOLEIC ACID
  15. OZURDEX [Suspect]
     Active Substance: DEXAMETHASONE
  16. COMBIGAN [Concomitant]
     Active Substance: BRIMONIDINE TARTRATE\TIMOLOL MALEATE
  17. COENZYME Q10 [Concomitant]
     Active Substance: DIETARY SUPPLEMENT\UBIDECARENONE
  18. VITAMIN B6 [Concomitant]
     Active Substance: PYRIDOXINE HYDROCHLORIDE
  19. STEARIC ACID. [Concomitant]
     Active Substance: STEARIC ACID
  20. OLEIC ACID [Concomitant]
     Active Substance: OLEIC ACID
  21. ADDERALL XR [Concomitant]
     Active Substance: AMPHETAMINE ASPARTATE\AMPHETAMINE SULFATE\DEXTROAMPHETAMINE SACCHARATE\DEXTROAMPHETAMINE SULFATE
  22. ADDERALL [Concomitant]
     Active Substance: AMPHETAMINE ASPARTATE\AMPHETAMINE SULFATE\DEXTROAMPHETAMINE SACCHARATE\DEXTROAMPHETAMINE SULFATE
  23. CRANBERRY. [Concomitant]
     Active Substance: CRANBERRY
  24. PALMITIC ACID. [Concomitant]
     Active Substance: PALMITIC ACID
  25. LYCOPENE [Concomitant]
     Active Substance: LYCOPENE
  26. VITAMIN E [Concomitant]
     Active Substance: .ALPHA.-TOCOPHEROL
  27. FOLIC ACID. [Concomitant]
     Active Substance: FOLIC ACID
  28. CALCIUM [Concomitant]
     Active Substance: CALCIUM
  29. PUMPKIN SEED OIL [Concomitant]
  30. DURAZOL EYE DROPS [Concomitant]
  31. VITAMIN B12 [Concomitant]
     Active Substance: CYANOCOBALAMIN
  32. PANTOTHENIC ACID [Concomitant]
     Active Substance: PANTOTHENIC ACID

REACTIONS (5)
  - Swelling [None]
  - Therapy non-responder [None]
  - Uveitis [None]
  - Macular degeneration [None]
  - Vitreous floaters [None]

NARRATIVE: CASE EVENT DATE: 20151110
